FAERS Safety Report 7511602-8 (Version None)
Quarter: 2011Q2

REPORT INFORMATION
  Report Type: 
  Country: None (occurrence: None)
  Receive Date: 20110531
  Receipt Date: 20110523
  Transmission Date: 20111010
  Serious: Yes (Hospitalization)
  Sender: FDA-Public Use
  Company Number: JP-PFIZER INC-2011105562

PATIENT
  Age: 88 Year
  Sex: Male

DRUGS (7)
  1. ALLELOCK [Concomitant]
     Dosage: UNK
     Route: 048
  2. MUCODYNE [Concomitant]
     Dosage: UNK
     Route: 048
  3. GENINAX [Suspect]
     Indication: BRONCHITIS CHRONIC
     Dosage: 400 MG, 1X/DAY
     Route: 048
     Dates: start: 20110501
  4. FAMOTIDINE [Suspect]
     Dosage: 20 MG, 1X/DAY
     Route: 048
  5. PLAVIX [Concomitant]
     Dosage: UNK
     Route: 048
  6. DIOVAN [Concomitant]
     Dosage: UNK
     Route: 048
  7. LIPITOR [Suspect]
     Dosage: 10 MG, 1X/DAY
     Route: 048

REACTIONS (1)
  - THROMBOCYTOPENIA [None]
